FAERS Safety Report 20427744 (Version 3)
Quarter: 2022Q1

REPORT INFORMATION
  Report Type: Spontaneous
  Country: JP (occurrence: JP)
  Receive Date: 20220204
  Receipt Date: 20220331
  Transmission Date: 20220423
  Serious: Yes (Hospitalization, Other)
  Sender: FDA-Public Use
  Company Number: JP-TAKEDA-2022TJP013527

PATIENT
  Age: 52 Year
  Sex: Male
  Weight: 69.8 kg

DRUGS (7)
  1. ENTYVIO [Suspect]
     Active Substance: VEDOLIZUMAB
     Indication: Colitis ulcerative
     Dosage: 300 MILLIGRAM
     Route: 041
     Dates: start: 20210823, end: 20211129
  2. SPIKEVAX [Suspect]
     Active Substance: ELASOMERAN
     Indication: Product used for unknown indication
     Dosage: UNK
     Route: 065
  3. SPIKEVAX [Suspect]
     Active Substance: ELASOMERAN
     Dosage: UNK
     Route: 065
     Dates: start: 202108, end: 202108
  4. VONOPRAZAN FUMARATE [Concomitant]
     Active Substance: VONOPRAZAN FUMARATE
     Indication: Product used for unknown indication
     Dosage: 10 MILLIGRAM, QD
     Route: 048
     Dates: start: 20210521
  5. PENTASA [Concomitant]
     Active Substance: MESALAMINE
     Indication: Colitis ulcerative
     Dosage: 2 GRAM, BID
     Route: 048
     Dates: start: 1996
  6. MIYA-BM [Concomitant]
     Active Substance: CLOSTRIDIUM BUTYRICUM SPORES STRAIN M-55
     Indication: Colitis ulcerative
     Dosage: 2 DOSAGE FORM, TID
     Route: 048
     Dates: start: 20210805, end: 20211203
  7. ISODINE [Concomitant]
     Active Substance: POVIDONE-IODINE
     Indication: Oropharyngeal discomfort
     Dosage: UNK
     Route: 065
     Dates: start: 20211129, end: 20211203

REACTIONS (4)
  - Viral pericarditis [Recovered/Resolved]
  - Pulmonary congestion [Recovered/Resolved]
  - Cardiac hypertrophy [Recovered/Resolved]
  - Pneumonitis [Recovered/Resolved]

NARRATIVE: CASE EVENT DATE: 20211203
